FAERS Safety Report 15676139 (Version 2)
Quarter: 2018Q4

REPORT INFORMATION
  Report Type: Report from Study
  Country: UG (occurrence: UG)
  Receive Date: 20181130
  Receipt Date: 20181206
  Transmission Date: 20190205
  Serious: Yes (Life-Threatening, Other)
  Sender: FDA-Public Use
  Company Number: UG-VIIV HEALTHCARE LIMITED-UG2018GSK210576

PATIENT
  Age: 19 Year
  Sex: Female

DRUGS (5)
  1. LAMIVUDINE + TENOFOVIR DISOPROXIL FUMARATE [Concomitant]
     Active Substance: LAMIVUDINE\TENOFOVIR DISOPROXIL FUMARATE
     Dosage: 650 MG
     Dates: start: 20180530
  2. DOLUTEGRAVIR [Suspect]
     Active Substance: DOLUTEGRAVIR
     Indication: HIV INFECTION
     Dosage: 50 MG, QD
     Route: 048
     Dates: start: 20180530, end: 20181115
  3. LOPINAVIR [Concomitant]
     Active Substance: LOPINAVIR
  4. COTRIMOXAZOLE [Concomitant]
     Active Substance: SULFAMETHOXAZOLE\TRIMETHOPRIM
     Dosage: 960 MG, UNK
     Dates: start: 20180530
  5. RITONAVIR. [Concomitant]
     Active Substance: RITONAVIR

REACTIONS (1)
  - Suicide attempt [Not Recovered/Not Resolved]

NARRATIVE: CASE EVENT DATE: 20181115
